FAERS Safety Report 4776307-5 (Version None)
Quarter: 2005Q3

REPORT INFORMATION
  Report Type: 
  Country: None (occurrence: None)
  Receive Date: 20050921
  Receipt Date: 20050915
  Transmission Date: 20060218
  Serious: Yes (Hospitalization, Other)
  Sender: FDA-Public Use
  Company Number: GBWYE745315JUN05

PATIENT
  Age: 63 Year
  Sex: Male

DRUGS (1)
  1. EFFEXOR XR [Suspect]
     Indication: DEPRESSION
     Dosage: 225 + 75 + 37.5 MG (FREQUENCY UNSPECIFIED) ORAL SEE IMAGE
     Route: 048

REACTIONS (3)
  - BLOOD POTASSIUM DECREASED [None]
  - EPILEPSY [None]
  - HYPONATRAEMIA [None]
